FAERS Safety Report 4382246-4 (Version None)
Quarter: 2004Q2

REPORT INFORMATION
  Report Type: 
  Country: None (occurrence: None)
  Receive Date: 20040616
  Receipt Date: 20040527
  Transmission Date: 20050107
  Serious: No
  Sender: FDA-Public Use
  Company Number: A01200303217

PATIENT
  Age: 49 Year
  Sex: Female

DRUGS (3)
  1. ELOXATIN [Suspect]
     Indication: COLORECTAL CANCER METASTATIC
     Dosage: 80 MG/M2 Q2W, INTRAVENOUS NOS
     Route: 042
     Dates: start: 20020219, end: 20020219
  2. FLUOROURACIL [Concomitant]
  3. DEXAMETHASONE [Concomitant]

REACTIONS (17)
  - BLOOD BILIRUBIN INCREASED [None]
  - BLOOD LACTATE DEHYDROGENASE INCREASED [None]
  - BONE MARROW DEPRESSION [None]
  - CHILLS [None]
  - COLORECTAL CANCER [None]
  - COOMBS DIRECT TEST [None]
  - HAEMOLYTIC ANAEMIA [None]
  - HAPTOGLOBIN DECREASED [None]
  - INFUSION RELATED REACTION [None]
  - LABORATORY TEST ABNORMAL [None]
  - MALIGNANT NEOPLASM PROGRESSION [None]
  - POLYCHROMASIA [None]
  - PYREXIA [None]
  - RED BLOOD CELL SPHEROCYTES PRESENT [None]
  - SECONDARY IMMUNODEFICIENCY [None]
  - THROMBOCYTOPENIA [None]
  - TRANSFUSION REACTION [None]
